FAERS Safety Report 17538122 (Version 1)
Quarter: 2020Q1

REPORT INFORMATION
  Report Type: Spontaneous
  Country: GB (occurrence: GB)
  Receive Date: 20200313
  Receipt Date: 20200313
  Transmission Date: 20200409
  Serious: Yes (Other)
  Sender: FDA-Public Use
  Company Number: NVSC2020GB072080

PATIENT

DRUGS (7)
  1. DEXAMETHASONE. [Suspect]
     Active Substance: DEXAMETHASONE
     Indication: NON-HODGKIN^S LYMPHOMA
     Dosage: 20 MG/M2/DAY,3 DIVIDED DOSES
     Route: 042
  2. IBRUTINIB [Suspect]
     Active Substance: IBRUTINIB
     Indication: NON-HODGKIN^S LYMPHOMA
     Dosage: UNK,EARLY IN THE DAY
     Route: 065
  3. CARBOPLATIN. [Suspect]
     Active Substance: CARBOPLATIN
     Indication: NON-HODGKIN^S LYMPHOMA
     Dosage: 200 MG/M2/24 HOURS CONTINUOUS
     Route: 041
  4. RITUXIMAB. [Suspect]
     Active Substance: RITUXIMAB
     Indication: NON-HODGKIN^S LYMPHOMA
     Dosage: 375 MG/M2
     Route: 065
  5. VINCRISTINE [Suspect]
     Active Substance: VINCRISTINE
     Indication: NON-HODGKIN^S LYMPHOMA
     Dosage: 0.4 MG/M2/24 HOUR CONTINUOUS INFUSION
     Route: 041
  6. IFOSFAMIDE. [Suspect]
     Active Substance: IFOSFAMIDE
     Indication: NON-HODGKIN^S LYMPHOMA
     Dosage: 2 G/M2/24 HOURS OVER 5 DAYS
     Route: 041
  7. IDARUBICIN [Suspect]
     Active Substance: IDARUBICIN
     Indication: NON-HODGKIN^S LYMPHOMA
     Dosage: 10 MG/M2
     Route: 065

REACTIONS (2)
  - Leukopenia [Unknown]
  - Product use in unapproved indication [Unknown]
